FAERS Safety Report 16678418 (Version 2)
Quarter: 2020Q1

REPORT INFORMATION
  Report Type: Spontaneous
  Country: CA (occurrence: CA)
  Receive Date: 20190807
  Receipt Date: 20200313
  Transmission Date: 20200409
  Serious: Yes (Other)
  Sender: FDA-Public Use
  Company Number: CA-JNJFOC-20190802977

PATIENT
  Age: 5 Decade
  Sex: Male
  Weight: 96.2 kg

DRUGS (7)
  1. PREDNISONE. [Concomitant]
     Active Substance: PREDNISONE
     Route: 065
  2. PREDNISONE. [Concomitant]
     Active Substance: PREDNISONE
     Route: 065
     Dates: start: 20180920
  3. METHOTREXATE. [Concomitant]
     Active Substance: METHOTREXATE
  4. VERSED [Concomitant]
     Active Substance: MIDAZOLAM HYDROCHLORIDE
     Route: 065
  5. STELARA [Suspect]
     Active Substance: USTEKINUMAB
     Route: 058
     Dates: start: 201809
  6. STELARA [Suspect]
     Active Substance: USTEKINUMAB
     Indication: CROHN^S DISEASE
     Dosage: THE LAST DOSE  OF USTEKINUMAB WAS INJECTED ON 05-SEP-2018
     Route: 058
     Dates: start: 201712
  7. FENTANYL. [Concomitant]
     Active Substance: FENTANYL
     Route: 065

REACTIONS (6)
  - Drug ineffective [Unknown]
  - Off label use [Unknown]
  - Ankle fracture [Unknown]
  - Crohn^s disease [Unknown]
  - Anal stenosis [Unknown]
  - Product use issue [Unknown]

NARRATIVE: CASE EVENT DATE: 201809
